FAERS Safety Report 6140301-2 (Version None)
Quarter: 2009Q2

REPORT INFORMATION
  Report Type: 
  Country: None (occurrence: None)
  Receive Date: 20090401
  Receipt Date: 20090326
  Transmission Date: 20091009
  Serious: Yes (Hospitalization, Other)
  Sender: FDA-Public Use
  Company Number: PHHY2008JP30217

PATIENT
  Sex: Male
  Weight: 68 kg

DRUGS (7)
  1. DIOVAN [Suspect]
     Indication: HYPERTENSION
     Dosage: 20 MG, QD
     Route: 048
     Dates: start: 20081001, end: 20081015
  2. DIOVAN [Suspect]
     Indication: PROTEINURIA
  3. AMLODIPINE [Concomitant]
     Dosage: 5 MG
     Route: 048
  4. SELOKEN [Concomitant]
     Dosage: 20 MG
     Route: 048
  5. QUINAPRIL HCL [Concomitant]
     Dosage: 10 MG
     Route: 048
  6. URALYT [Concomitant]
     Indication: HYPERURICAEMIA
     Dosage: 6 DF, UNK
  7. ZYLORIC ^FRESENIUS^ [Concomitant]
     Indication: HYPERURICAEMIA
     Dosage: 2 DF, UNK

REACTIONS (2)
  - BRADYCARDIA [None]
  - VENTRICULAR EXTRASYSTOLES [None]
